FAERS Safety Report 18538020 (Version 1)
Quarter: 2020Q4

REPORT INFORMATION
  Report Type: Spontaneous
  Country: US (occurrence: US)
  Receive Date: 20201123
  Receipt Date: 20201123
  Transmission Date: 20210114
  Serious: Yes (Hospitalization)
  Sender: FDA-Public Use
  Company Number: US-FRESENIUS MEDICAL CARE RENAL THERAPIES GROUP-FMC-2011-001409

PATIENT
  Age: 64 Year
  Sex: Female
  Weight: 56 kg

DRUGS (13)
  1. RENAPLEX D [Concomitant]
  2. DELFLEX WITH DEXTROSE 1.5% LOW MAGNESIUM LOW CALCIUM [Suspect]
     Active Substance: CALCIUM CHLORIDE\DEXTROSE\MAGNESIUM CHLORIDE\SODIUM CHLORIDE\SODIUM LACTATE
     Indication: END STAGE RENAL DISEASE
     Dosage: 6 FILLS, FILL VOLUME 2300 ML, LAST FILL 2000 ML, TOTAL VOLUME 13, 800 ML, SINCE 03DEC2019
     Route: 033
  3. CALCITRIOL. [Concomitant]
     Active Substance: CALCITRIOL
  4. FISH OIL [Concomitant]
     Active Substance: FISH OIL
  5. POTASSIUM CHLORIDE. [Concomitant]
     Active Substance: POTASSIUM CHLORIDE
  6. VITAMIN D3 [Concomitant]
     Active Substance: CHOLECALCIFEROL
  7. SODIUM BICARBONATE. [Concomitant]
     Active Substance: SODIUM BICARBONATE
  8. ASPIRIN. [Concomitant]
     Active Substance: ASPIRIN
  9. ACETAMINOPHEN. [Concomitant]
     Active Substance: ACETAMINOPHEN
  10. GENTAMYCIN [Concomitant]
     Active Substance: GENTAMICIN
  11. SEVELAMER [Concomitant]
     Active Substance: SEVELAMER
  12. FOLIC ACID. [Concomitant]
     Active Substance: FOLIC ACID
  13. LACTULOSE. [Concomitant]
     Active Substance: LACTULOSE

REACTIONS (5)
  - Mental status changes [Unknown]
  - Dehydration [Unknown]
  - Asthenia [Unknown]
  - Failure to thrive [Unknown]
  - Hypotension [Unknown]
